FAERS Safety Report 7588936-4 (Version None)
Quarter: 2011Q3

REPORT INFORMATION
  Report Type: 
  Country: None (occurrence: None)
  Receive Date: 20110705
  Receipt Date: 20110621
  Transmission Date: 20111222
  Serious: Yes (Hospitalization)
  Sender: FDA-Public Use
  Company Number: DE-JNJFOC-20110610191

PATIENT
  Age: 20 Year
  Sex: Female
  Weight: 76 kg

DRUGS (2)
  1. INFLIXIMAB, RECOMBINANT [Suspect]
     Route: 042
     Dates: start: 20101210
  2. INFLIXIMAB, RECOMBINANT [Suspect]
     Indication: CROHN'S DISEASE
     Dosage: 5 DOSES TOTAL
     Route: 042
     Dates: start: 20110406

REACTIONS (1)
  - FISTULA [None]
